FAERS Safety Report 14315413 (Version 3)
Quarter: 2018Q3

REPORT INFORMATION
  Report Type: Spontaneous
  Country: US (occurrence: US)
  Receive Date: 20171221
  Receipt Date: 20180709
  Transmission Date: 20181010
  Serious: Yes (Other)
  Sender: FDA-Public Use
  Company Number: US-CELGENEUS-USA-20171206072

PATIENT
  Age: 55 Year
  Sex: Male

DRUGS (1)
  1. OTEZLA [Suspect]
     Active Substance: APREMILAST
     Indication: PSORIASIS
     Dosage: 60 MILLIGRAM
     Route: 048
     Dates: start: 20170717

REACTIONS (4)
  - Pain [Unknown]
  - Nausea [Unknown]
  - Vomiting [Unknown]
  - Back pain [Unknown]

NARRATIVE: CASE EVENT DATE: 20171215
